FAERS Safety Report 9423903 (Version 1)
Quarter: 2013Q3

REPORT INFORMATION
  Report Type: Spontaneous
  Country: US (occurrence: US)
  Receive Date: 20130729
  Receipt Date: 20130729
  Transmission Date: 20140515
  Serious: No
  Sender: FDA-Public Use
  Company Number: US-BIOGENIDEC-2013BI068776

PATIENT
  Sex: Female

DRUGS (5)
  1. AVONEX [Suspect]
     Indication: MULTIPLE SCLEROSIS
     Route: 030
     Dates: start: 20130422
  2. NORVASC [Concomitant]
  3. PAXIL [Concomitant]
  4. BACLOFEN [Concomitant]
  5. FONTORA [Concomitant]

REACTIONS (1)
  - Influenza [Unknown]
